FAERS Safety Report 4865754-9 (Version None)
Quarter: 2005Q4

REPORT INFORMATION
  Report Type: 
  Country: None (occurrence: None)
  Receive Date: 20051223
  Receipt Date: 20051215
  Transmission Date: 20060501
  Serious: Yes (Hospitalization)
  Sender: FDA-Public Use
  Company Number: PHBS2005US18741

PATIENT
  Age: 28 Year
  Sex: Female

DRUGS (13)
  1. PIPERACILLIN W/TAZOBACTAM [Concomitant]
     Route: 042
  2. VANCOMYCIN [Concomitant]
     Route: 042
  3. TOBI [Concomitant]
  4. COLISTIN [Concomitant]
  5. COLISTIN [Concomitant]
     Route: 042
  6. CYCLOSPORINE [Suspect]
     Indication: LUNG TRANSPLANT
     Route: 048
  7. CEFTAZIDIME [Concomitant]
     Route: 042
  8. TOBRAMYCIN [Concomitant]
     Route: 042
  9. INSULIN [Concomitant]
  10. HEPARIN [Concomitant]
     Dosage: 100 IU/H, UNK
  11. AZATHIOPRINE [Suspect]
     Indication: LUNG TRANSPLANT
     Dosage: 2 MG/KG/D
     Route: 048
  12. PREDNISONE 50MG TAB [Concomitant]
     Dosage: 0.5 MG/KG/DAY
     Route: 048
  13. PREDNISONE 50MG TAB [Concomitant]
     Dosage: 15 MG EVERY OTHER DAY

REACTIONS (31)
  - ANTERIOR CHAMBER CELL [None]
  - ANTERIOR CHAMBER FLARE [None]
  - CHEST WALL ABSCESS [None]
  - CHILLS [None]
  - CHORIORETINAL DISORDER [None]
  - CONJUNCTIVAL OEDEMA [None]
  - ENDOPHTHALMITIS [None]
  - EYE DISORDER [None]
  - EYE PAIN [None]
  - HEADACHE [None]
  - HYPOTENSION [None]
  - INTRACARDIAC THROMBUS [None]
  - LACRIMATION INCREASED [None]
  - LUNG INFECTION PSEUDOMONAL [None]
  - LUNG INFILTRATION [None]
  - MACULOPATHY [None]
  - NON-CARDIAC CHEST PAIN [None]
  - OCULAR HYPERAEMIA [None]
  - PERICARDIAL EFFUSION [None]
  - PERICARDIAL RUB [None]
  - PYREXIA [None]
  - RETINAL EXUDATES [None]
  - RETINAL INFARCTION [None]
  - RETINAL SCAR [None]
  - SCOTOMA [None]
  - VISION BLURRED [None]
  - VISUAL ACUITY REDUCED [None]
  - VISUAL FIELD DEFECT [None]
  - VITRECTOMY [None]
  - VITREOUS DISORDER [None]
  - VITREOUS FLOATERS [None]
